FAERS Safety Report 19939479 (Version 1)
Quarter: 2021Q4

REPORT INFORMATION
  Report Type: Other
  Country: PT (occurrence: PT)
  Receive Date: 20211011
  Receipt Date: 20211011
  Transmission Date: 20220303
  Serious: Yes (Other)
  Sender: FDA-Public Use
  Company Number: PT-NAVINTA LLC-000200

PATIENT
  Age: 72 Year
  Sex: Female

DRUGS (3)
  1. RIBAVIRIN [Suspect]
     Active Substance: RIBAVIRIN
     Indication: Chronic hepatitis C
  2. LEDIPASVIR [Suspect]
     Active Substance: LEDIPASVIR
     Indication: Chronic hepatitis C
  3. SOFOSBUVIR [Suspect]
     Active Substance: SOFOSBUVIR
     Indication: Chronic hepatitis C

REACTIONS (3)
  - Hepatocellular carcinoma [Unknown]
  - Metastases to bone [Unknown]
  - Disease progression [Unknown]
